FAERS Safety Report 4305256-1 (Version None)
Quarter: 2004Q1

REPORT INFORMATION
  Report Type: 
  Country: None (occurrence: None)
  Receive Date: 20040226
  Receipt Date: 20031219
  Transmission Date: 20041129
  Serious: No
  Sender: FDA-Public Use
  Company Number: US-BRISTOL-MYERS SQUIBB COMPANY-12463238

PATIENT
  Age: 58 Year
  Sex: Female

DRUGS (10)
  1. DEFINITY [Suspect]
     Indication: ULTRASOUND SCAN
     Dosage: .2 CC RECEIVED SUBSEQUENT TO SYMPTOMS FOR A TOTAL OF .3 CC.
     Dates: start: 20031216
  2. ENOXAPARIN SODIUM [Concomitant]
  3. PROTONIX [Concomitant]
  4. LIPITOR [Concomitant]
  5. ASPIRIN [Concomitant]
  6. ISORDIL [Concomitant]
  7. METOPROLOL [Concomitant]
  8. INSULIN [Concomitant]
  9. LISINOPRIL [Concomitant]
  10. LASIX [Concomitant]

REACTIONS (1)
  - BACK PAIN [None]
